FAERS Safety Report 6425895-1 (Version None)
Quarter: 2009Q4

REPORT INFORMATION
  Report Type: 
  Country: None (occurrence: None)
  Receive Date: 20091029
  Receipt Date: 20091021
  Transmission Date: 20100525
  Serious: Yes (Other)
  Sender: FDA-Public Use
  Company Number: 2009SP032741

PATIENT

DRUGS (1)
  1. CORICIDIN [Suspect]
     Indication: DRUG USE FOR UNKNOWN INDICATION
     Dosage: 40 DF;PO
     Route: 048
     Dates: start: 20091001

REACTIONS (1)
  - ACCIDENTAL DRUG INTAKE BY CHILD [None]
